FAERS Safety Report 8015363-8 (Version None)
Quarter: 2011Q4

REPORT INFORMATION
  Report Type: 
  Country: None (occurrence: None)
  Receive Date: 20111230
  Receipt Date: 20111220
  Transmission Date: 20120403
  Serious: Yes (Death, Hospitalization, Other)
  Sender: FDA-Public Use
  Company Number: FR-ELI_LILLY_AND_COMPANY-FR201111008031

PATIENT
  Age: 74 Year
  Sex: Female
  Weight: 55 kg

DRUGS (5)
  1. CHONDROSULF [Concomitant]
     Dosage: UNK, UNKNOWN
     Route: 065
  2. UVEDOSE [Concomitant]
     Dosage: UNK, UNKNOWN
     Route: 065
  3. FENOFIBRATE [Concomitant]
     Dosage: UNK, UNKNOWN
     Route: 065
  4. FORTEO [Suspect]
     Indication: OSTEOPOROTIC FRACTURE
     Dosage: 20 UG, QD
     Route: 058
     Dates: start: 20110301, end: 20111101
  5. MODURETIC 5-50 [Concomitant]
     Dosage: UNK, UNKNOWN
     Route: 065

REACTIONS (4)
  - FALL [None]
  - SYNCOPE [None]
  - VERTIGO [None]
  - CEREBRAL HAEMORRHAGE [None]
